FAERS Safety Report 17623306 (Version 2)
Quarter: 2020Q2

REPORT INFORMATION
  Report Type: Report from Study
  Country: CA (occurrence: CA)
  Receive Date: 20200403
  Receipt Date: 20200421
  Transmission Date: 20200713
  Serious: Yes (Other)
  Sender: FDA-Public Use
  Company Number: CA-JNJFOC-20191113332

PATIENT
  Sex: Male
  Weight: 92.1 kg

DRUGS (2)
  1. STELARA [Suspect]
     Active Substance: USTEKINUMAB
     Indication: CROHN^S DISEASE
     Route: 058
     Dates: start: 20190408
  2. STELARA [Suspect]
     Active Substance: USTEKINUMAB
     Route: 058
     Dates: start: 20190723

REACTIONS (13)
  - Crohn^s disease [Unknown]
  - Dysuria [Unknown]
  - Coronavirus infection [Unknown]
  - Blood urine present [Unknown]
  - Drug ineffective [Unknown]
  - Myositis [Unknown]
  - Influenza like illness [Unknown]
  - Prostatic disorder [Unknown]
  - Ear pain [Unknown]
  - Flank pain [Unknown]
  - Vertigo [Unknown]
  - Blood cholesterol increased [Unknown]
  - Palpitations [Unknown]

NARRATIVE: CASE EVENT DATE: 2020
